FAERS Safety Report 6157808-4 (Version None)
Quarter: 2009Q2

REPORT INFORMATION
  Report Type: 
  Country: None (occurrence: None)
  Receive Date: 20090414
  Receipt Date: 20090304
  Transmission Date: 20091009
  Serious: Yes (Hospitalization)
  Sender: FDA-Public Use
  Company Number: CHTZ20090001

PATIENT
  Age: 76 Year
  Sex: Male

DRUGS (11)
  1. CAPTOPRIL AND HYDROCHLOROTHIAZIDE [Suspect]
     Indication: HYPERTENSION
     Dosage: ONE TABLET DAILY
     Dates: start: 20080801, end: 20080915
  2. LEVOTHYROX [Concomitant]
  3. INIPOMP [Concomitant]
  4. TADENAN [Concomitant]
  5. ALUMINUM HYDROXIDE AND MAGNESIUM TRISILICATE [Concomitant]
  6. KARDEGIC [Concomitant]
  7. XALACOM [Concomitant]
  8. TIORFAN [Concomitant]
  9. ERCEFURYL [Concomitant]
  10. LODALES 20 MG [Concomitant]
  11. NICARDIPINE HCL [Concomitant]

REACTIONS (8)
  - ARRHYTHMIA [None]
  - ATRIOVENTRICULAR BLOCK COMPLETE [None]
  - BUNDLE BRANCH BLOCK RIGHT [None]
  - DEHYDRATION [None]
  - DIALYSIS [None]
  - GASTROENTERITIS [None]
  - RENAL FAILURE ACUTE [None]
  - SINUS BRADYCARDIA [None]
